FAERS Safety Report 20584307 (Version 11)
Quarter: 2025Q3

REPORT INFORMATION
  Report Type: Report from Study
  Country: US (occurrence: US)
  Receive Date: 20220311
  Receipt Date: 20250918
  Transmission Date: 20251020
  Serious: Yes (Other)
  Sender: TAKEDA
  Company Number: US-TAKEDA-2021TUS059316

PATIENT
  Age: 40 Year
  Sex: Female
  Weight: 61 kg

DRUGS (24)
  1. HUMAN IMMUNOGLOBULIN G [Suspect]
     Active Substance: HUMAN IMMUNOGLOBULIN G
     Indication: Immunodeficiency common variable
     Dosage: 35 GRAM, Q4WEEKS
  2. HUMAN IMMUNOGLOBULIN G [Suspect]
     Active Substance: HUMAN IMMUNOGLOBULIN G
  3. DIPHENHYDRAMINE [Concomitant]
     Active Substance: DIPHENHYDRAMINE
  4. SODIUM CHLORIDE [Concomitant]
     Active Substance: SODIUM CHLORIDE
  5. EPINEPHRINE [Concomitant]
     Active Substance: EPINEPHRINE
  6. MOBIC [Concomitant]
     Active Substance: MELOXICAM
  7. ACETAMINOPHEN [Concomitant]
     Active Substance: ACETAMINOPHEN
  8. AZELASTINE HYDROCHLORIDE [Concomitant]
     Active Substance: AZELASTINE HYDROCHLORIDE
  9. NASONEX [Concomitant]
     Active Substance: MOMETASONE FUROATE
  10. HEPARIN [Concomitant]
     Active Substance: HEPARIN SODIUM
  11. ONDANSETRON [Concomitant]
     Active Substance: ONDANSETRON
  12. LIDOCAINE [Concomitant]
     Active Substance: LIDOCAINE
  13. SODIUM CHLORIDE [Concomitant]
     Active Substance: SODIUM CHLORIDE
  14. HUMALOG [Concomitant]
     Active Substance: INSULIN LISPRO
  15. MIRENA [Concomitant]
     Active Substance: LEVONORGESTREL
  16. BUSPIRONE HCL [Concomitant]
     Active Substance: BUSPIRONE HYDROCHLORIDE
  17. BUDESONIDE [Concomitant]
     Active Substance: BUDESONIDE
  18. LOSARTAN POTASSIUM [Concomitant]
     Active Substance: LOSARTAN POTASSIUM
  19. EFFEXOR [Concomitant]
     Active Substance: VENLAFAXINE HYDROCHLORIDE
  20. DOXYCYCLINE HYCLATE [Concomitant]
     Active Substance: DOXYCYCLINE HYCLATE
  21. PRISTIQ EXTENDED-RELEASE [Concomitant]
     Active Substance: DESVENLAFAXINE SUCCINATE
  22. DIPHENHYDRAMINE HYDROCHLORIDE [Concomitant]
     Active Substance: DIPHENHYDRAMINE HYDROCHLORIDE
  23. DEXTROSE [Concomitant]
     Active Substance: DEXTROSE MONOHYDRATE
  24. AZITHROMYCIN [Concomitant]
     Active Substance: AZITHROMYCIN

REACTIONS (10)
  - Sialoadenitis [Recovered/Resolved]
  - COVID-19 [Recovered/Resolved]
  - Breast disorder [Recovering/Resolving]
  - Arthropod bite [Recovering/Resolving]
  - Fall [Recovering/Resolving]
  - Fractured coccyx [Recovering/Resolving]
  - Product dose omission issue [Unknown]
  - Sinus disorder [Recovering/Resolving]
  - Ear infection [Recovering/Resolving]
  - Sinusitis [Unknown]

NARRATIVE: CASE EVENT DATE: 20210920
